FAERS Safety Report 25071306 (Version 1)
Quarter: 2025Q1

REPORT INFORMATION
  Report Type: Spontaneous
  Country: IR (occurrence: IR)
  Receive Date: 20250312
  Receipt Date: 20250312
  Transmission Date: 20250409
  Serious: Yes (Death)
  Sender: BIOMARIN
  Company Number: IR-BIOMARINAP-IR-2025-164508

PATIENT

DRUGS (1)
  1. NAGLAZYME [Suspect]
     Active Substance: GALSULFASE
     Indication: Mucopolysaccharidosis VI
     Route: 065

REACTIONS (2)
  - Thrombocytopenia [Fatal]
  - Bone marrow transplant [Unknown]
